FAERS Safety Report 25583918 (Version 1)
Quarter: 2025Q3

REPORT INFORMATION
  Report Type: Other
  Country: US (occurrence: US)
  Receive Date: 20250721
  Receipt Date: 20250721
  Transmission Date: 20251020
  Serious: No
  Sender: BIOCON
  Company Number: US-BIOCON BIOLOGICS LIMITED-BBL2024006230

PATIENT

DRUGS (1)
  1. PEGFILGRASTIM [Suspect]
     Active Substance: PEGFILGRASTIM
     Indication: Febrile neutropenia
     Route: 065

REACTIONS (5)
  - Product dose omission in error [Unknown]
  - Needle issue [Unknown]
  - Syringe issue [Unknown]
  - Device use confusion [Unknown]
  - Product formulation issue [Unknown]
